FAERS Safety Report 16412664 (Version 2)
Quarter: 2019Q2

REPORT INFORMATION
  Report Type: Spontaneous
  Country: US (occurrence: US)
  Receive Date: 20190611
  Receipt Date: 20190613
  Transmission Date: 20190711
  Serious: Yes (Other)
  Sender: FDA-Public Use
  Company Number: US-JNJFOC-20190601210

PATIENT
  Age: 24 Year
  Sex: Female
  Weight: 52.16 kg

DRUGS (1)
  1. NEUTROGENA OIL FREE ACNE WASH PINK GRAPEFRUIT FACIAL CLEANSER [Suspect]
     Active Substance: SALICYLIC ACID
     Indication: ACCIDENTAL EXPOSURE TO PRODUCT
     Dosage: QUANTITY: HALF A PUMP, FREQUENCY: TWICE A DAY
     Route: 047
     Dates: start: 20190514

REACTIONS (2)
  - Accidental exposure to product [Unknown]
  - Eye burns [Recovering/Resolving]

NARRATIVE: CASE EVENT DATE: 20190530
